FAERS Safety Report 18949203 (Version 1)
Quarter: 2021Q1

REPORT INFORMATION
  Report Type: Spontaneous
  Country: US (occurrence: US)
  Receive Date: 20210227
  Receipt Date: 20210227
  Transmission Date: 20210420
  Serious: No
  Sender: FDA-Public Use
  Company Number: US-ROCHE-2648485

PATIENT
  Sex: Female
  Weight: 60.38 kg

DRUGS (5)
  1. NUCALA [Concomitant]
     Active Substance: MEPOLIZUMAB
     Route: 058
     Dates: start: 20200210
  2. FUROSEMIDE. [Concomitant]
     Active Substance: FUROSEMIDE
     Route: 048
     Dates: start: 20200210
  3. CALCIUM [Concomitant]
     Active Substance: CALCIUM
     Route: 048
     Dates: start: 20200210
  4. FIBER [Concomitant]
     Active Substance: PSYLLIUM HUSK
     Route: 048
     Dates: start: 20200210
  5. XOLAIR [Suspect]
     Active Substance: OMALIZUMAB
     Indication: ASTHMA
     Dosage: ATE OF TREATMENT: 12/FEB/2020
     Route: 058
     Dates: start: 20200212

REACTIONS (2)
  - Pain [Unknown]
  - Headache [Unknown]
